FAERS Safety Report 19553632 (Version 2)
Quarter: 2021Q4

REPORT INFORMATION
  Report Type: Spontaneous
  Country: IE (occurrence: IE)
  Receive Date: 20210714
  Receipt Date: 20211118
  Transmission Date: 20220303
  Serious: Yes (Hospitalization, Other)
  Sender: FDA-Public Use
  Company Number: IE-PFIZER INC-2021823483

PATIENT
  Age: 38 Year
  Sex: Male

DRUGS (10)
  1. FLUCONAZOLE [Suspect]
     Active Substance: FLUCONAZOLE
     Indication: Meningitis cryptococcal
     Dosage: 1200 MG, 1X/DAY
  2. FLUCONAZOLE [Suspect]
     Active Substance: FLUCONAZOLE
     Dosage: 800 MG, 1X/DAY
  3. AMBISOME [Concomitant]
     Active Substance: AMPHOTERICIN B
     Indication: Meningitis cryptococcal
     Dosage: 4 MG/KG, 1X/DAY
  4. FLUCYTOSINE [Concomitant]
     Active Substance: FLUCYTOSINE
     Indication: Meningitis cryptococcal
     Dosage: 25 MG/KG, 4X/DAY
  5. BICTEGRAVIR/EMTRICITABINE/TENOFOVIR ALAFENAMIDE FUMARATE [Concomitant]
     Dosage: UNK (COMMENCED ON DAY 26)
  6. EMTRICITABINE [Concomitant]
     Active Substance: EMTRICITABINE
     Dosage: UNK
  7. ISAVUCONAZOLE [Concomitant]
     Active Substance: ISAVUCONAZOLE
     Indication: Meningitis cryptococcal
     Dosage: 200 MG, 2X/DAY
  8. ISAVUCONAZOLE [Concomitant]
     Active Substance: ISAVUCONAZOLE
     Dosage: 200 MG, 1X/DAY
  9. PREDNISOLONE [Concomitant]
     Active Substance: PREDNISOLONE
     Indication: Meningitis cryptococcal
     Dosage: 60 MG, 1X/DAY
  10. DOLUTEGRAVIR SODIUM/RILPIVIRINE HYDROCHLORIDE [Concomitant]
     Dosage: UNK

REACTIONS (6)
  - Intentional overdose [Unknown]
  - Acute kidney injury [Unknown]
  - Mucosal inflammation [Unknown]
  - Nausea [Unknown]
  - Vomiting [Unknown]
  - Alopecia [Unknown]
